FAERS Safety Report 8333837-7 (Version None)
Quarter: 2012Q2

REPORT INFORMATION
  Report Type: 
  Country: None (occurrence: None)
  Receive Date: 20120503
  Receipt Date: 20120425
  Transmission Date: 20120825
  Serious: Yes (Hospitalization, Other)
  Sender: FDA-Public Use
  Company Number: US-BAYER-2011-069148

PATIENT
  Age: 75 Year
  Sex: Male
  Weight: 82 kg

DRUGS (17)
  1. MUCINEX [Concomitant]
  2. FLORINEF [Concomitant]
     Indication: ADDISON'S DISEASE
     Dosage: 1 DF, QD
     Route: 048
  3. ADVAIR DISKUS 100/50 [Concomitant]
     Dosage: 250/50, 1 PUFF BID
     Route: 055
  4. COLACE [Concomitant]
     Dosage: 100MG BID, PRN
     Route: 048
  5. BENADRYL [Concomitant]
  6. SARGRAMOSTIM [Suspect]
     Indication: MALIGNANT MELANOMA
     Dosage: 250 ?G/D, ON DAYS 1-14 OF A CYCLE OF 21 DAYS
     Route: 058
     Dates: start: 20110613, end: 20120301
  7. ALBUTEROL [Concomitant]
     Dosage: 2 PUFFS EVERY 6 HRS PRN
  8. COUMADIN [Concomitant]
     Indication: THROMBOSIS PROPHYLAXIS
     Dosage: UNK
     Dates: end: 20120301
  9. IBUPROFEN [Concomitant]
     Dosage: PRN
  10. NAPROSYN [Concomitant]
     Dosage: PRN
  11. DUONEB [Concomitant]
     Indication: CHRONIC OBSTRUCTIVE PULMONARY DISEASE
     Dosage: UNK
     Route: 055
     Dates: start: 20120301
  12. POTASSIUM CHLORIDE [Concomitant]
     Dosage: 20 MEQ, QD
     Route: 048
  13. LASIX [Concomitant]
     Dosage: 8 MG, QD
     Route: 048
  14. SARGRAMOSTIM [Suspect]
     Dosage: 250 ?G/D, UNK
     Route: 058
     Dates: start: 20120326
  15. MDX-010 [Suspect]
     Indication: MALIGNANT MELANOMA
     Dosage: 10 MG/KG, ON DAY 1 OF A 21 DAY CYCLE
     Dates: start: 20110705
  16. METOPROLOL TARTRATE [Concomitant]
  17. CORTEF [Concomitant]
     Indication: ADDISON'S DISEASE
     Dosage: 20 MG, BID
     Route: 048

REACTIONS (4)
  - HYPONATRAEMIA [None]
  - HYPOTENSION [None]
  - PNEUMONIA [None]
  - DEHYDRATION [None]
